FAERS Safety Report 11882509 (Version 1)
Quarter: 2015Q4

REPORT INFORMATION
  Report Type: Spontaneous
  Country: AU (occurrence: AU)
  Receive Date: 20151231
  Receipt Date: 20151231
  Transmission Date: 20160305
  Serious: Yes (Other)
  Sender: FDA-Public Use
  Company Number: AU-BAYER-2015-494609

PATIENT
  Age: 67 Year
  Sex: Female

DRUGS (5)
  1. ACETYLSALICYLIC ACID({=100 MG) [Suspect]
     Active Substance: ASPIRIN
     Indication: PULMONARY EMBOLISM
  2. WARFARIN [Concomitant]
     Active Substance: WARFARIN
  3. ENOXAPARIN [Concomitant]
     Active Substance: ENOXAPARIN
  4. CLOPIDOGREL [Suspect]
     Active Substance: CLOPIDOGREL BISULFATE
  5. PRASUGREL [Concomitant]
     Active Substance: PRASUGREL

REACTIONS (2)
  - Thrombosis [None]
  - Drug ineffective [None]
